FAERS Safety Report 8306781 (Version 4)
Quarter: 2014Q1

REPORT INFORMATION
  Report Type: Spontaneous
  Country: FR (occurrence: FR)
  Receive Date: 20111216
  Receipt Date: 20140305
  Transmission Date: 20141002
  Serious: Yes (Hospitalization, Other)
  Sender: FDA-Public Use
  Company Number: FR-PFIZER INC-2011303818

PATIENT
  Age: 80 Year
  Sex: Female

DRUGS (7)
  1. ARTOTEC [Suspect]
     Dosage: 75/0.2MG, 2X/DAY
     Route: 048
     Dates: end: 20110915
  2. METOJECT [Suspect]
     Dosage: 12.5 MG, WEEKLY
     Route: 030
     Dates: end: 20110915
  3. COAPROVEL [Suspect]
     Dosage: 300MG/25MG, 1 DFX/1 DAY
     Route: 048
     Dates: end: 20110915
  4. GLUCOVANCE [Suspect]
     Dosage: 500MG/5MG, 1DFX/3DAY
     Route: 048
     Dates: end: 20110915
  5. MOPRAL [Concomitant]
     Dosage: 10 MG, 1X/DAY
     Route: 048
  6. DOLIPRANE [Concomitant]
     Dosage: 1 G, 3X/DAY
     Route: 048
  7. LORAZEPAM [Concomitant]
     Dosage: 1 MG, 1X/DAY
     Route: 048

REACTIONS (3)
  - Pyelonephritis [Unknown]
  - Hepatic cirrhosis [Not Recovered/Not Resolved]
  - Hepatic fibrosis [Recovered/Resolved]
